FAERS Safety Report 5109573-7 (Version None)
Quarter: 2006Q3

REPORT INFORMATION
  Report Type: 
  Country: None (occurrence: None)
  Receive Date: 20060918
  Receipt Date: 20060901
  Transmission Date: 20061208
  Serious: Yes (Other)
  Sender: FDA-Public Use
  Company Number: FR200607002511

PATIENT
  Age: 83 Year
  Sex: Female
  Weight: 47 kg

DRUGS (9)
  1. FORTEO [Suspect]
     Indication: OSTEOPOROSIS
     Dosage: 20 UG, DAILY (1/D), SUBCUTANEOUS
     Route: 058
     Dates: start: 20051115, end: 20060710
  2. FORTEO [Concomitant]
  3. SINTROM /NET/ (ACENOCOUMAROL) [Concomitant]
  4. VASTAREL (TRIMETAZIDINE HYDROCHLORIDE) [Concomitant]
  5. SIMVASTATIN [Concomitant]
  6. DAFLON 500 (DIOSMIN, HESPERIDIN) [Concomitant]
  7. DUSPATALIN (MEBEVERINE HYDROCHLORIDE) [Concomitant]
  8. TRANSILANE (POTASSIUM BICARBONATE, PSYLLIUM HYDROPHILIC MUCILLOID) [Concomitant]
  9. LANSOPRAZOLE [Concomitant]

REACTIONS (1)
  - THROMBOPHLEBITIS [None]
